FAERS Safety Report 8993316 (Version 1)
Quarter: 2013Q1

REPORT INFORMATION
  Report Type: Spontaneous
  Country: US (occurrence: US)
  Receive Date: 20130102
  Receipt Date: 20130102
  Transmission Date: 20140127
  Serious: No
  Sender: FDA-Public Use
  Company Number: US-PFIZER INC-2012333352

PATIENT
  Age: 83 Year
  Sex: Female
  Weight: 64.4 kg

DRUGS (6)
  1. PRISTIQ [Suspect]
     Indication: ANXIETY
     Dosage: 50 MG, DAILY
     Dates: start: 20121228
  2. ATIVAN [Suspect]
     Indication: ANXIETY
     Dosage: 0.5 MG, AS NEEDED
     Dates: start: 2012, end: 2012
  3. ATIVAN [Suspect]
     Dosage: 0.5 MG, UNK
     Dates: start: 2012
  4. DICLOFENAC [Concomitant]
     Indication: PAIN
     Dosage: 75 MG, 2X/DAY
  5. DICLOFENAC [Concomitant]
     Indication: OSTEOARTHRITIS
  6. LUNESTA [Concomitant]
     Indication: SLEEP DISORDER
     Dosage: UNK

REACTIONS (6)
  - Drug ineffective [Unknown]
  - Influenza [Unknown]
  - Diarrhoea [Unknown]
  - Headache [Not Recovered/Not Resolved]
  - Nausea [Not Recovered/Not Resolved]
  - Vomiting [Not Recovered/Not Resolved]
